FAERS Safety Report 12516117 (Version 3)
Quarter: 2016Q3

REPORT INFORMATION
  Report Type: Spontaneous
  Country: RU (occurrence: RU)
  Receive Date: 20160630
  Receipt Date: 20160714
  Transmission Date: 20161109
  Serious: Yes (Death, Hospitalization, Other)
  Sender: FDA-Public Use
  Company Number: RU-TEVA-671145ISR

PATIENT
  Age: 7 Month
  Sex: Female

DRUGS (17)
  1. DEXASON [Suspect]
     Active Substance: DEXAMETHASONE
     Route: 065
  2. PHYSIOLOGICAL SOLUTION [Suspect]
     Active Substance: UNSPECIFIED INGREDIENT
     Route: 065
  3. GLUCOSE [Suspect]
     Active Substance: DEXTROSE
     Route: 065
  4. VITAMIN C [Suspect]
     Active Substance: ASCORBIC ACID
     Route: 065
  5. LINEX [Suspect]
     Active Substance: LACTOBACILLUS ACIDOPHILUS
     Route: 065
  6. MOTILIUM [Suspect]
     Active Substance: DOMPERIDONE
     Route: 065
  7. EUPHYLLIN [Suspect]
     Active Substance: AMINOPHYLLINE
     Route: 065
  8. VIFERON [Suspect]
     Active Substance: INTERFERON ALFA-2B
     Route: 065
  9. ANALGIN [Suspect]
     Active Substance: METAMIZOLE SODIUM
     Route: 065
  10. CERUCAL [Suspect]
     Active Substance: METOCLOPRAMIDE HYDROCHLORIDE
     Route: 042
  11. DEXAMETHASONE. [Suspect]
     Active Substance: DEXAMETHASONE
     Route: 065
  12. MEROPENEM. [Suspect]
     Active Substance: MEROPENEM
     Route: 065
  13. ENTEROFURYL [Suspect]
     Active Substance: NIFUROXAZIDE
     Route: 065
  14. CEFTRIAXONE. [Suspect]
     Active Substance: CEFTRIAXONE
     Route: 065
  15. PANTOGAM [Concomitant]
     Active Substance: CALCIUM HOPANTENATE
     Route: 065
  16. FUROSEMIDE. [Suspect]
     Active Substance: FUROSEMIDE
     Route: 065
  17. DIMEDROL [Suspect]
     Active Substance: DIPHENHYDRAMINE
     Route: 065

REACTIONS (5)
  - Reye^s syndrome [Fatal]
  - Brain oedema [Fatal]
  - Coma [Fatal]
  - Hepatic failure [Fatal]
  - Central nervous system lesion [Fatal]
